FAERS Safety Report 5773115-3 (Version None)
Quarter: 2008Q2

REPORT INFORMATION
  Report Type: 
  Country: None (occurrence: None)
  Receive Date: 20080613
  Receipt Date: 20080606
  Transmission Date: 20081010
  Serious: Yes (Hospitalization)
  Sender: FDA-Public Use
  Company Number: US-GENENTECH-261292

PATIENT
  Sex: Female
  Weight: 53.3 kg

DRUGS (9)
  1. TENECTEPLASE [Suspect]
     Indication: INDWELLING CATHETER MANAGEMENT
     Dosage: 2 ML, UNK
     Route: 050
     Dates: start: 20080516
  2. TENECTEPLASE [Suspect]
     Dosage: 2 ML, UNK
     Route: 050
     Dates: start: 20080516
  3. MAGNA BIND (UNK INGREDIENTS) [Concomitant]
     Indication: DRUG USE FOR UNKNOWN INDICATION
     Dates: start: 20060426
  4. NEPHRO-VITE [Concomitant]
     Indication: DRUG USE FOR UNKNOWN INDICATION
     Dates: start: 20070505
  5. CALCIUM SALTS NOS [Concomitant]
     Indication: DRUG USE FOR UNKNOWN INDICATION
     Dates: start: 20080101
  6. CINACALCET HYDROCHLORIDE [Concomitant]
     Indication: HYPERMAGNESAEMIA
     Dates: start: 20070616
  7. CINACALCET HYDROCHLORIDE [Concomitant]
     Indication: HYPERCALCAEMIA
  8. ACETAMINOPHEN [Concomitant]
     Indication: ANALGESIA
     Dates: start: 20060802
  9. XANAX [Concomitant]
     Indication: ANXIETY

REACTIONS (1)
  - STAPHYLOCOCCAL BACTERAEMIA [None]
